FAERS Safety Report 19642719 (Version 2)
Quarter: 2021Q3

REPORT INFORMATION
  Report Type: Report from Study
  Country: MX (occurrence: MX)
  Receive Date: 20210731
  Receipt Date: 20210804
  Transmission Date: 20211014
  Serious: Yes (Death, Hospitalization, Other)
  Sender: FDA-Public Use
  Company Number: MX-TAKEDA-MX201940867

PATIENT
  Age: 21 Year
  Sex: Male
  Weight: 24 kg

DRUGS (14)
  1. OXCARBAZEPINE. [Concomitant]
     Active Substance: OXCARBAZEPINE
     Indication: MUCOPOLYSACCHARIDOSIS II
     Dosage: 300 MILLIGRAM, BID
     Route: 065
     Dates: start: 2014
  2. OXCARBAZEPINE. [Concomitant]
     Active Substance: OXCARBAZEPINE
     Dosage: 1 AND 1 HALF TABLETS, Q12H
     Route: 065
  3. IDURSULFASE [Suspect]
     Active Substance: IDURSULFASE
     Dosage: 12 MILLIGRAM, QD
     Route: 042
     Dates: start: 201109
  4. TOPIRAMATE. [Concomitant]
     Active Substance: TOPIRAMATE
     Indication: MUCOPOLYSACCHARIDOSIS II
     Dosage: 100 MILLIGRAM, BID
     Route: 065
  5. TOPIRAMATE. [Concomitant]
     Active Substance: TOPIRAMATE
     Dosage: 25 MILLIGRAM, BID
     Route: 065
     Dates: start: 2014
  6. LORATADINE. [Concomitant]
     Active Substance: LORATADINE
     Indication: MUCOPOLYSACCHARIDOSIS II
     Dosage: 10 MILLIGRAM, QD
     Route: 065
     Dates: start: 2019
  7. IDURSULFASE [Suspect]
     Active Substance: IDURSULFASE
     Dosage: 12 MILLIGRAM, 1/WEEK
     Route: 042
     Dates: start: 201109
  8. IDURSULFASE [Suspect]
     Active Substance: IDURSULFASE
     Dosage: 2 DOSAGE FORM, 1X/WEEK
     Route: 042
     Dates: start: 20200318
  9. CARBAMAZEPINE. [Concomitant]
     Active Substance: CARBAMAZEPINE
     Indication: MUCOPOLYSACCHARIDOSIS II
     Route: 065
  10. IDURSULFASE [Suspect]
     Active Substance: IDURSULFASE
     Indication: MUCOPOLYSACCHARIDOSIS II
     Dosage: 2 DOSAGE FORM, 1X/WEEK
     Route: 042
     Dates: start: 2000
  11. IDURSULFASE [Suspect]
     Active Substance: IDURSULFASE
     Dosage: 2 DOSAGE FORM (2 VIALS WITH 6MG/3ML), 1X/WEEK
     Route: 042
     Dates: start: 2011
  12. IDURSULFASE [Suspect]
     Active Substance: IDURSULFASE
     Dosage: 12 MILLIGRAM, 1/WEEK
     Route: 042
     Dates: start: 201109
  13. IDURSULFASE [Suspect]
     Active Substance: IDURSULFASE
     Dosage: 2 DOSAGE FORM, 1X/WEEK
     Route: 042
     Dates: start: 2011
  14. IDURSULFASE [Suspect]
     Active Substance: IDURSULFASE
     Dosage: 2 DOSAGE FORM, 1X/WEEK
     Route: 042
     Dates: start: 20191122

REACTIONS (6)
  - Therapy interrupted [Not Recovered/Not Resolved]
  - Pneumonia [Recovered/Resolved]
  - COVID-19 [Fatal]
  - Seizure [Not Recovered/Not Resolved]
  - Product dose omission issue [Not Recovered/Not Resolved]
  - Inappropriate schedule of product administration [Not Recovered/Not Resolved]

NARRATIVE: CASE EVENT DATE: 20191107
